FAERS Safety Report 22355776 (Version 1)
Quarter: 2023Q2

REPORT INFORMATION
  Report Type: Spontaneous
  Country: GB (occurrence: GB)
  Receive Date: 20230523
  Receipt Date: 20230523
  Transmission Date: 20230721
  Serious: Yes (Hospitalization, Other)
  Sender: FDA-Public Use
  Company Number: GB-EMA-DD-20191028-abdul_j-173044

PATIENT
  Age: 45 Year
  Sex: Female
  Weight: 80 kg

DRUGS (37)
  1. EXEMESTANE [Suspect]
     Active Substance: EXEMESTANE
     Indication: Breast cancer metastatic
     Dosage: 25 MILLIGRAM, DAILY
     Route: 048
     Dates: start: 20150518
  2. ANASTROZOLE [Suspect]
     Active Substance: ANASTROZOLE
     Indication: Product used for unknown indication
     Dosage: UNK
     Route: 065
  3. IBANDRONIC ACID [Suspect]
     Active Substance: IBANDRONIC ACID
     Indication: Metastases to bone
     Dosage: 50 MG, QD
     Route: 048
     Dates: start: 20150518
  4. PERTUZUMAB [Suspect]
     Active Substance: PERTUZUMAB
     Indication: Breast cancer metastatic
     Dosage: MAINTENANCE DOSE
     Route: 042
     Dates: start: 20160715
  5. PERTUZUMAB [Suspect]
     Active Substance: PERTUZUMAB
     Dosage: MAINTAINANCE DOSE
     Route: 042
     Dates: start: 20151217, end: 20160308
  6. PERTUZUMAB [Suspect]
     Active Substance: PERTUZUMAB
     Dosage: ONE CYCLE (LOADING DOSE)
     Route: 042
     Dates: start: 20150804, end: 20150804
  7. PERTUZUMAB [Suspect]
     Active Substance: PERTUZUMAB
     Dosage: LOADING DOSE
     Route: 042
     Dates: start: 20160623, end: 20160623
  8. PERTUZUMAB [Suspect]
     Active Substance: PERTUZUMAB
     Dosage: MAINTAINANCE DOSE
     Route: 042
     Dates: start: 20150825, end: 20151117
  9. HYALURONIDASE (HUMAN RECOMBINANT)\TRASTUZUMAB [Suspect]
     Active Substance: HYALURONIDASE (HUMAN RECOMBINANT)\TRASTUZUMAB
     Indication: Breast cancer metastatic
     Dosage: STOPPED ()
     Route: 058
     Dates: end: 20160308
  10. HYALURONIDASE (HUMAN RECOMBINANT)\TRASTUZUMAB [Suspect]
     Active Substance: HYALURONIDASE (HUMAN RECOMBINANT)\TRASTUZUMAB
     Dosage: MAINTAINANCE DOSE
     Route: 058
     Dates: start: 20150825, end: 20151117
  11. HYALURONIDASE (HUMAN RECOMBINANT)\TRASTUZUMAB [Suspect]
     Active Substance: HYALURONIDASE (HUMAN RECOMBINANT)\TRASTUZUMAB
     Dosage: 600 MILLIGRAM, 1 DOSE/3 WEEKS
     Route: 058
     Dates: start: 20160623
  12. DOCETAXEL [Suspect]
     Active Substance: DOCETAXEL
     Indication: Breast cancer metastatic
     Dosage: 120 MILLIGRAM, 1 DOSE/3 WEEKS
     Route: 042
     Dates: start: 20150804, end: 20151117
  13. DOCETAXEL [Suspect]
     Active Substance: DOCETAXEL
     Indication: Breast cancer metastatic
  14. TRASTUZUMAB [Suspect]
     Active Substance: TRASTUZUMAB
     Indication: Breast cancer metastatic
     Dosage: LOADING DOSE
     Route: 042
     Dates: start: 20150803, end: 20150803
  15. TRASTUZUMAB [Suspect]
     Active Substance: TRASTUZUMAB
     Indication: Breast cancer metastatic
     Dosage: LOADING DOSE
     Route: 042
     Dates: start: 20151217, end: 20160308
  16. TAXOTERE [Suspect]
     Active Substance: DOCETAXEL
     Indication: Breast cancer metastatic
     Dosage: 120 MG, Q3W
     Route: 065
     Dates: start: 20150814, end: 20151117
  17. TAXOTERE [Suspect]
     Active Substance: DOCETAXEL
     Dosage: 75 MILLIGRAM
     Route: 065
  18. HYALURONIDASE [Suspect]
     Active Substance: HYALURONIDASE
     Indication: Product used for unknown indication
     Dosage: UNK
     Route: 065
     Dates: start: 20160308
  19. HYALURONIDASE [Suspect]
     Active Substance: HYALURONIDASE
     Dosage: 600 MILLIGRAM, Q3W
     Route: 065
     Dates: start: 20160623
  20. HYALURONIDASE [Suspect]
     Active Substance: HYALURONIDASE
     Dosage: 600 MILLIGRAM, 3 TIMES IN A WEEK, MAINTAINANCE DOSE
     Route: 065
     Dates: start: 20150825, end: 20151117
  21. DEXAMETHASONE [Concomitant]
     Active Substance: DEXAMETHASONE
     Indication: Product used for unknown indication
     Dosage: FOR 3 DAYS EVERY 3 WEEKS
     Route: 048
     Dates: start: 20150803
  22. DENOSUMAB [Concomitant]
     Active Substance: DENOSUMAB
     Indication: Product used for unknown indication
     Dosage: 120 MG, MONTHLY
     Route: 058
     Dates: start: 20160127, end: 201802
  23. DENOSUMAB [Concomitant]
     Active Substance: DENOSUMAB
     Dosage: 8 MILLIGRAM, 3 DAYS EVERY 3 WEEKS
     Route: 065
  24. IRON [Concomitant]
     Active Substance: IRON
     Indication: Serum ferritin decreased
     Dosage: UNK
     Route: 065
  25. CALCIUM [Concomitant]
     Active Substance: CALCIUM
     Indication: Product used for unknown indication
     Dosage: UNK
     Route: 065
  26. ACETAMINOPHEN [Concomitant]
     Active Substance: ACETAMINOPHEN
     Indication: Device related infection
     Dosage: 500 MILLIGRAM, QID
     Route: 065
     Dates: start: 20141211, end: 20141224
  27. CIPROFLOXACIN [Concomitant]
     Active Substance: CIPROFLOXACIN
     Indication: Product used for unknown indication
     Dosage: 1000 MG, 1X/DAY
     Route: 065
     Dates: start: 20151210, end: 20151215
  28. AMOXICILLIN\CLAVULANATE POTASSIUM [Concomitant]
     Active Substance: AMOXICILLIN\CLAVULANATE POTASSIUM
     Indication: Product used for unknown indication
     Dosage: 625 MG, TID
     Route: 065
     Dates: start: 20160915
  29. AMOXICILLIN\CLAVULANATE POTASSIUM [Concomitant]
     Active Substance: AMOXICILLIN\CLAVULANATE POTASSIUM
     Dosage: 120 MG
     Route: 065
     Dates: start: 20160127
  30. AMOXICILLIN\CLAVULANATE POTASSIUM [Concomitant]
     Active Substance: AMOXICILLIN\CLAVULANATE POTASSIUM
     Dosage: 1875 MG, QD
     Route: 065
     Dates: start: 20160915
  31. AMOXICILLIN\CLAVULANATE POTASSIUM [Concomitant]
     Active Substance: AMOXICILLIN\CLAVULANATE POTASSIUM
     Dosage: UNK
     Route: 065
  32. BENZYDAMINE HYDROCHLORIDE [Concomitant]
     Active Substance: BENZYDAMINE HYDROCHLORIDE
     Indication: Product used for unknown indication
  33. BISOPROLOL [Concomitant]
     Active Substance: BISOPROLOL
     Indication: Product used for unknown indication
  34. GENTAMICIN [Concomitant]
     Active Substance: GENTAMICIN
     Indication: Product used for unknown indication
  35. IBANDRONIC ACID [Suspect]
     Active Substance: IBANDRONIC ACID
     Indication: Product used for unknown indication
     Route: 065
  36. MEROPENEM [Concomitant]
     Active Substance: MEROPENEM
     Indication: Product used for unknown indication
  37. RAMIPRIL [Concomitant]
     Active Substance: RAMIPRIL
     Indication: Product used for unknown indication

REACTIONS (19)
  - Lymphoedema [Recovered/Resolved]
  - Anaemia [Recovered/Resolved]
  - Mucosal inflammation [Recovered/Resolved]
  - Epistaxis [Recovered/Resolved]
  - Gastrooesophageal reflux disease [Recovered/Resolved]
  - Influenza like illness [Recovered/Resolved]
  - Diarrhoea [Recovered/Resolved]
  - Fatigue [Recovered/Resolved]
  - Ejection fraction decreased [Recovered/Resolved]
  - Rash [Recovered/Resolved]
  - Alopecia [Recovered/Resolved]
  - Hot flush [Unknown]
  - Gingival swelling [Recovered/Resolved]
  - Device related infection [Recovered/Resolved]
  - Fatigue [Recovered/Resolved]
  - Off label use [Recovered/Resolved]
  - Sepsis [Unknown]
  - Osteonecrosis of jaw [Not Recovered/Not Resolved]
  - Fatigue [Recovered/Resolved]

NARRATIVE: CASE EVENT DATE: 20150801
